FAERS Safety Report 8226730-1 (Version None)
Quarter: 2012Q1

REPORT INFORMATION
  Report Type: 
  Country: None (occurrence: None)
  Receive Date: 20120322
  Receipt Date: 20120313
  Transmission Date: 20120608
  Serious: Yes (Hospitalization)
  Sender: FDA-Public Use
  Company Number: US-BAYER-201022459NA

PATIENT
  Age: 41 Year
  Sex: Female
  Weight: 111 kg

DRUGS (9)
  1. YASMIN [Suspect]
     Indication: MENSTRUATION IRREGULAR
     Dosage: UNK
     Dates: start: 20070101, end: 20080101
  2. YAZ [Suspect]
     Indication: PREMENSTRUAL SYNDROME
  3. DIOVAN HCT [Concomitant]
     Dosage: UNK UNK, QD
     Route: 048
     Dates: start: 20060915
  4. DIAZIDE [Concomitant]
     Dosage: UNK
     Dates: start: 20040517
  5. YASMIN [Suspect]
     Indication: PREMENSTRUAL SYNDROME
     Dosage: UNK
     Dates: start: 20070101, end: 20080101
  6. WELLBUTRIN XL [Concomitant]
  7. BENICAR HCT [Concomitant]
     Dosage: UNK UNK, QD
  8. YAZ [Suspect]
     Indication: MENSTRUATION IRREGULAR
     Dosage: UNK
     Dates: start: 20070101, end: 20080101
  9. CHANTIX [Concomitant]

REACTIONS (4)
  - CEREBROVASCULAR ACCIDENT [None]
  - OEDEMA PERIPHERAL [None]
  - INJURY [None]
  - DEEP VEIN THROMBOSIS [None]
